FAERS Safety Report 10388035 (Version 3)
Quarter: 2014Q3

REPORT INFORMATION
  Report Type: Spontaneous
  Country: GB (occurrence: GB)
  Receive Date: 20140815
  Receipt Date: 20140912
  Transmission Date: 20150326
  Serious: Yes (Other)
  Sender: FDA-Public Use
  Company Number: GB-VERTEX PHARMACEUTICALS INC-2014-003470

PATIENT
  Age: 29 Year
  Sex: Male
  Weight: 111 kg

DRUGS (16)
  1. E45 [Concomitant]
     Indication: PROPHYLAXIS
     Dosage: DOSAGE FORM: LOTION
     Route: 065
     Dates: start: 20140513, end: 20140519
  2. PARACETAMOL [Concomitant]
     Active Substance: ACETAMINOPHEN
     Indication: PYREXIA
     Dosage: 2 DF, QD
     Route: 065
     Dates: start: 20140513
  3. DERMACOL [Concomitant]
     Indication: PRURITUS
     Dosage: QD
     Route: 061
     Dates: start: 20140517, end: 20140811
  4. PARACETAMOL [Concomitant]
     Active Substance: ACETAMINOPHEN
     Indication: PYREXIA
  5. CETRIZINE [Concomitant]
     Active Substance: CETIRIZINE HYDROCHLORIDE
     Indication: PRURITUS
  6. DERMACOL [Concomitant]
     Indication: PRURITUS
  7. RIBAVIRIN. [Suspect]
     Active Substance: RIBAVIRIN
     Indication: CHRONIC HEPATITIS C
     Dosage: 1400 MG, QD
     Route: 065
     Dates: start: 20140513
  8. LORATADINE. [Concomitant]
     Active Substance: LORATADINE
     Indication: PRURITUS
  9. CARDIODINE [Concomitant]
     Indication: RASH
     Route: 065
     Dates: start: 20140519, end: 20140520
  10. INCIVO [Suspect]
     Active Substance: TELAPREVIR
     Indication: CHRONIC HEPATITIS C
     Dosage: 1125 MG, BID
     Route: 048
     Dates: start: 20140513, end: 20140805
  11. INTERFERON NOS [Suspect]
     Active Substance: INTERFERON
     Indication: CHRONIC HEPATITIS C
     Dosage: 150 MCI, QW
     Route: 065
     Dates: start: 20140513
  12. HYDROXYZINE [Concomitant]
     Active Substance: HYDROXYZINE\HYDROXYZINE HYDROCHLORIDE
     Indication: PRURITUS
     Dosage: 25 MG, QD
     Route: 048
     Dates: start: 20140725, end: 20140811
  13. LORATADINE. [Concomitant]
     Active Substance: LORATADINE
     Indication: PRURITUS
     Dosage: 10 MG, QD
     Route: 048
     Dates: start: 20140708, end: 20140725
  14. CETRIZINE [Concomitant]
     Active Substance: CETIRIZINE HYDROCHLORIDE
     Indication: PRURITUS
     Dosage: 10 MG, QD
     Route: 048
     Dates: start: 20140627, end: 20140708
  15. HYDROXYZINE [Concomitant]
     Active Substance: HYDROXYZINE\HYDROXYZINE HYDROCHLORIDE
     Indication: PRURITUS
  16. DERMACOL [Concomitant]
     Indication: DRY SKIN
     Dosage: QD
     Route: 061
     Dates: start: 20140818

REACTIONS (3)
  - Rash pruritic [Recovering/Resolving]
  - Dry skin [Recovered/Resolved]
  - Urticaria [Recovered/Resolved]

NARRATIVE: CASE EVENT DATE: 20140519
